FAERS Safety Report 6680125-0 (Version None)
Quarter: 2010Q2

REPORT INFORMATION
  Report Type: 
  Country: None (occurrence: None)
  Receive Date: 20100409
  Receipt Date: 20100326
  Transmission Date: 20101027
  Serious: Yes (Other)
  Sender: FDA-Public Use
  Company Number: 1000012670

PATIENT
  Age: 60 Year
  Sex: Male
  Weight: 77.4 kg

DRUGS (10)
  1. CITALOPRAM HYDROBROMIDE [Suspect]
     Indication: DEPRESSION
     Dosage: 20 MG (20 MG,  IN 1 D), ORAL
     Route: 048
     Dates: end: 20100212
  2. CLOZARIL [Suspect]
     Indication: SCHIZOPHRENIA
     Dosage: 400 MG (400 MG, 1 IN 1 D),ORAL
     Route: 048
     Dates: start: 20091023
  3. CLOZARIL [Suspect]
     Indication: SCHIZOPHRENIA
     Dosage: 500 MG (500 MG, 1 IN 1 D), ORAL
     Route: 048
  4. CLOZARIL [Suspect]
     Indication: SCHIZOPHRENIA
     Dosage: ORAL
     Route: 048
  5. ASPIRIN [Concomitant]
  6. GLICLAZIDE [Concomitant]
  7. IRON [Concomitant]
  8. METFORMIN [Concomitant]
  9. OMEPRAZOLE [Concomitant]
  10. PROPRANOLOL [Concomitant]

REACTIONS (4)
  - ANTIPSYCHOTIC DRUG LEVEL INCREASED [None]
  - BLOOD ALKALINE PHOSPHATASE INCREASED [None]
  - BLOOD SODIUM DECREASED [None]
  - PNEUMONIA [None]
